FAERS Safety Report 6895982-2 (Version None)
Quarter: 2010Q3

REPORT INFORMATION
  Report Type: 
  Country: None (occurrence: None)
  Receive Date: 20100802
  Receipt Date: 20100720
  Transmission Date: 20110219
  Serious: Yes (Death, Hospitalization, Other)
  Sender: FDA-Public Use
  Company Number: GB-BAUSCH-2010BL003950

PATIENT
  Age: 75 Year
  Sex: Male

DRUGS (5)
  1. PREDNISOLONE [Suspect]
     Indication: B-CELL LYMPHOMA
  2. CYCLOPHOSPHAMIDE [Suspect]
     Indication: B-CELL LYMPHOMA
  3. DOXORUBICIN HCL [Suspect]
     Indication: B-CELL LYMPHOMA
  4. RITUXIMAB [Suspect]
     Indication: B-CELL LYMPHOMA
  5. VINCRISTINE [Suspect]
     Indication: B-CELL LYMPHOMA

REACTIONS (6)
  - ENCEPHALITIS ENTEROVIRAL [None]
  - GASTROENTERITIS [None]
  - HYPOGAMMAGLOBULINAEMIA [None]
  - PNEUMONIA PRIMARY ATYPICAL [None]
  - PULMONARY EMBOLISM [None]
  - SEPSIS [None]
